FAERS Safety Report 19973374 (Version 1)
Quarter: 2021Q4

REPORT INFORMATION
  Report Type: Spontaneous
  Country: US (occurrence: US)
  Receive Date: 20211019
  Receipt Date: 20211019
  Transmission Date: 20220303
  Serious: Yes (Death)
  Sender: FDA-Public Use
  Company Number: None

PATIENT
  Age: 82 Year
  Sex: Male

DRUGS (2)
  1. MEKINIST [Suspect]
     Active Substance: TRAMETINIB DIMETHYL SULFOXIDE
     Route: 048
     Dates: start: 202102
  2. TAFINLAR [Concomitant]
     Active Substance: DABRAFENIB MESYLATE
     Dates: start: 20210218

REACTIONS (2)
  - Cardiac arrest [None]
  - Dyspnoea [None]

NARRATIVE: CASE EVENT DATE: 20211016
